FAERS Safety Report 6498145-8 (Version None)
Quarter: 2009Q4

REPORT INFORMATION
  Report Type: 
  Country: None (occurrence: None)
  Receive Date: 20091215
  Receipt Date: 20091118
  Transmission Date: 20100525
  Serious: Yes (Life-Threatening, Hospitalization)
  Sender: FDA-Public Use
  Company Number: JP-ROCHE-605398

PATIENT
  Sex: Male
  Weight: 48 kg

DRUGS (9)
  1. AVASTIN [Suspect]
     Indication: COLON CANCER RECURRENT
     Route: 041
     Dates: start: 20080826, end: 20081211
  2. VOLTAREN [Suspect]
     Indication: PAIN
     Route: 048
     Dates: start: 20081203, end: 20081211
  3. ELPLAT [Concomitant]
     Route: 041
     Dates: start: 20080722
  4. FLUOROURACIL [Concomitant]
     Route: 040
     Dates: start: 20080722
  5. CALCIUM LEVOFOLINATE [Concomitant]
     Dosage: DRUG: LEVOFOLINATE CALCIUM
     Route: 041
     Dates: start: 20080722
  6. OXYCONTIN [Concomitant]
     Dosage: DOSEFORM: SUSTAINED RELEASE TABLET
     Route: 048
     Dates: start: 20080619
  7. NOVAMIN [Concomitant]
     Route: 048
     Dates: start: 20080619
  8. ROHYPNOL [Concomitant]
     Route: 048
     Dates: start: 20080728
  9. FLUOROURACIL [Concomitant]
     Dosage: DOSE: 2400-3000 MG/M2
     Route: 041
     Dates: start: 20080722

REACTIONS (1)
  - JEJUNAL PERFORATION [None]
